FAERS Safety Report 14112123 (Version 25)
Quarter: 2020Q3

REPORT INFORMATION
  Report Type: Report from Study
  Country: TR (occurrence: TR)
  Receive Date: 20171020
  Receipt Date: 20191023
  Transmission Date: 20201105
  Serious: Yes (Death, Life-Threatening, Other)
  Sender: FDA-Public Use
  Company Number: TR-JNJFOC-20170928641

PATIENT
  Age: 15 Year
  Sex: Female
  Weight: 53 kg

DRUGS (17)
  1. CARBOPLATIN. [Suspect]
     Active Substance: CARBOPLATIN
     Indication: LYMPHOMA
     Dosage: PER PROTOCOL
     Route: 042
     Dates: start: 20170929
  2. DEXAMETHASONE. [Suspect]
     Active Substance: DEXAMETHASONE
     Indication: LYMPHOMA
     Dosage: PER PROTOCOL
     Route: 048
     Dates: start: 20171001, end: 20171005
  3. CYTARABINE. [Suspect]
     Active Substance: CYTARABINE
     Indication: LYMPHOMA
     Dosage: PER PROTOCOL
     Route: 037
     Dates: start: 20170926
  4. MEROPENEM. [Concomitant]
     Active Substance: MEROPENEM
     Indication: INFECTION PROPHYLAXIS
     Route: 065
     Dates: start: 20171022
  5. RITUXIMAB. [Suspect]
     Active Substance: RITUXIMAB
     Route: 042
     Dates: start: 20171115, end: 20171117
  6. METHOTREXATE. [Suspect]
     Active Substance: METHOTREXATE
     Route: 037
     Dates: start: 20170926
  7. ETOPOSIDE. [Suspect]
     Active Substance: ETOPOSIDE
     Indication: LYMPHOMA
     Dosage: PER PROTOCOL
     Route: 042
     Dates: start: 20170929, end: 20171001
  8. DEXAMETHASONE. [Suspect]
     Active Substance: DEXAMETHASONE
     Dosage: PER PROTOCOL
     Route: 048
     Dates: start: 20171123
  9. AMBISOME [Concomitant]
     Active Substance: AMPHOTERICIN B
     Indication: INFECTION PROPHYLAXIS
     Route: 042
     Dates: start: 20171022
  10. ETOPOSIDE. [Suspect]
     Active Substance: ETOPOSIDE
     Dosage: PER PROTOCOL
     Route: 042
     Dates: start: 20171117
  11. IBRUTINIB [Suspect]
     Active Substance: IBRUTINIB
     Indication: LYMPHOMA
     Route: 048
     Dates: start: 20170927
  12. PREDNISOLONE. [Suspect]
     Active Substance: PREDNISOLONE
     Indication: LYMPHOMA
     Dosage: PER PROTOCOL
     Route: 037
     Dates: start: 20170926
  13. RITUXIMAB. [Suspect]
     Active Substance: RITUXIMAB
     Indication: LYMPHOMA
     Dosage: PER PROTOCOL
     Route: 042
     Dates: start: 20170927
  14. IFOSFAMIDE. [Suspect]
     Active Substance: IFOSFAMIDE
     Indication: LYMPHOMA
     Dosage: PER PROTOCOL
     Route: 042
     Dates: start: 20170929, end: 20171001
  15. IFOSFAMIDE. [Suspect]
     Active Substance: IFOSFAMIDE
     Dosage: PER PROTOCOL
     Route: 042
     Dates: start: 20171117
  16. DEXAMETHASONE. [Suspect]
     Active Substance: DEXAMETHASONE
     Dosage: PER PROTOCOL
     Route: 048
     Dates: start: 20171119, end: 20171121
  17. METHOTREXATE. [Suspect]
     Active Substance: METHOTREXATE
     Indication: LYMPHOMA
     Dosage: PER PROTOCOL
     Route: 037
     Dates: start: 20170926, end: 20170926

REACTIONS (16)
  - Upper gastrointestinal haemorrhage [Recovered/Resolved]
  - Anaphylactic reaction [Recovered/Resolved]
  - Encephalopathy [Recovered/Resolved]
  - Systemic inflammatory response syndrome [Recovered/Resolved]
  - Pulmonary haemorrhage [Fatal]
  - Tonic convulsion [Recovered/Resolved]
  - Menorrhagia [Recovered/Resolved]
  - Lower gastrointestinal haemorrhage [Not Recovered/Not Resolved]
  - Hypernatraemia [Recovering/Resolving]
  - Cryptosporidiosis infection [Recovered/Resolved]
  - Sepsis [Recovering/Resolving]
  - Febrile neutropenia [Recovered/Resolved]
  - Lower gastrointestinal haemorrhage [Recovered/Resolved]
  - Pulmonary mycosis [Recovering/Resolving]
  - Febrile neutropenia [Recovering/Resolving]
  - Thrombocytopenia [Not Recovered/Not Resolved]

NARRATIVE: CASE EVENT DATE: 20170927
